FAERS Safety Report 15730278 (Version 2)
Quarter: 2019Q1

REPORT INFORMATION
  Report Type: Spontaneous
  Country: US (occurrence: US)
  Receive Date: 20181217
  Receipt Date: 20190327
  Transmission Date: 20190417
  Serious: Yes (Other)
  Sender: FDA-Public Use
  Company Number: US-SA-2018SA336805

PATIENT
  Age: 55 Year
  Sex: Female
  Weight: 84 kg

DRUGS (4)
  1. NEOSAR [Concomitant]
     Active Substance: CYCLOPHOSPHAMIDE
     Dosage: UNK
     Route: 065
  2. CYTOXAN [Concomitant]
     Active Substance: CYCLOPHOSPHAMIDE
     Dosage: UNK
     Route: 065
  3. TAXOTERE [Suspect]
     Active Substance: DOCETAXEL
     Dosage: 137 MG, Q3W
     Route: 042
     Dates: start: 20150310, end: 20150310
  4. TAXOTERE [Suspect]
     Active Substance: DOCETAXEL
     Indication: BREAST CANCER FEMALE
     Dosage: 137 MG, Q3W
     Route: 042
     Dates: start: 20150106, end: 20150106

REACTIONS (6)
  - Emotional distress [Unknown]
  - Pain [Unknown]
  - Impaired quality of life [Unknown]
  - Alopecia [Not Recovered/Not Resolved]
  - Anxiety [Unknown]
  - Psychological trauma [Unknown]

NARRATIVE: CASE EVENT DATE: 20150206
